FAERS Safety Report 4383203-4 (Version None)
Quarter: 2004Q2

REPORT INFORMATION
  Report Type: 
  Country: None (occurrence: None)
  Receive Date: 20040622
  Receipt Date: 20040622
  Transmission Date: 20050107
  Serious: Yes (Other)
  Sender: FDA-Public Use
  Company Number: None

PATIENT
  Age: 26 Year
  Sex: Female
  Weight: 55.3388 kg

DRUGS (6)
  1. PAXIL CR [Suspect]
     Indication: DEPRESSION
     Dosage: 25 MG ONCE DAILY ORAL
     Route: 048
     Dates: start: 20030610, end: 20030708
  2. PAXIL CR [Suspect]
     Indication: SOCIAL PHOBIA
     Dosage: 25 MG ONCE DAILY ORAL
     Route: 048
     Dates: start: 20030610, end: 20030708
  3. PAXIL CR [Suspect]
     Indication: DEPRESSION
     Dosage: 25 MG ONCE DAILY ORAL
     Route: 048
     Dates: start: 20031010, end: 20031203
  4. PAXIL CR [Suspect]
     Indication: SOCIAL PHOBIA
     Dosage: 25 MG ONCE DAILY ORAL
     Route: 048
     Dates: start: 20031010, end: 20031203
  5. PAXIL CR [Suspect]
     Dosage: 25MG ONCE DAILY ORAL
     Route: 048
     Dates: start: 20030610, end: 20030708
  6. PAXIL CR [Suspect]
     Dosage: 25MG ONCE DAILY ORAL
     Route: 048
     Dates: start: 20031010, end: 20031203

REACTIONS (2)
  - MENORRHAGIA [None]
  - MUSCLE SPASMS [None]
